FAERS Safety Report 15576995 (Version 1)
Quarter: 2018Q4

REPORT INFORMATION
  Report Type: Report from Study
  Country: None (occurrence: CA)
  Receive Date: 20181101
  Receipt Date: 20181101
  Transmission Date: 20190205
  Serious: Yes (Other)
  Sender: FDA-Public Use
  Company Number: CA-ABBVIE-18K-028-2540281-00

PATIENT
  Sex: Female

DRUGS (1)
  1. HUMIRA [Suspect]
     Active Substance: ADALIMUMAB
     Indication: PSORIASIS
     Route: 058
     Dates: start: 20120208

REACTIONS (3)
  - Weight decreased [Unknown]
  - Psoriasis [Not Recovered/Not Resolved]
  - Excessive skin [Unknown]

NARRATIVE: CASE EVENT DATE: 2017
